FAERS Safety Report 13139418 (Version 1)
Quarter: 2017Q1

REPORT INFORMATION
  Report Type: Spontaneous
  Country: GB (occurrence: GB)
  Receive Date: 20170123
  Receipt Date: 20170123
  Transmission Date: 20170428
  Serious: Yes (Hospitalization)
  Sender: FDA-Public Use
  Company Number: GB-PFIZER INC-2017027915

PATIENT
  Age: 7 Decade
  Sex: Male

DRUGS (3)
  1. TACROLIMUS. [Concomitant]
     Active Substance: TACROLIMUS
     Dosage: UNK
  2. AXITINIB [Suspect]
     Active Substance: AXITINIB
     Indication: METASTATIC RENAL CELL CARCINOMA
     Dosage: 3 MG, 2X/DAY
  3. AXITINIB [Suspect]
     Active Substance: AXITINIB
     Dosage: 7 OT 8 MG, UNK

REACTIONS (3)
  - Diarrhoea [Recovered/Resolved]
  - Chest pain [Recovered/Resolved]
  - Troponin increased [Unknown]
